FAERS Safety Report 24091504 (Version 1)
Quarter: 2024Q3

REPORT INFORMATION
  Report Type: Report from Study
  Country: IT (occurrence: IT)
  Receive Date: 20240715
  Receipt Date: 20240715
  Transmission Date: 20241016
  Serious: Yes (Hospitalization, Other)
  Sender: TEVA
  Company Number: None

PATIENT
  Age: 18 Year
  Sex: Male
  Weight: 48 kg

DRUGS (5)
  1. CISPLATIN [Suspect]
     Active Substance: CISPLATIN
     Indication: Testicular embryonal carcinoma
     Dosage: CISPLATINO TEVA ITALIA
     Route: 042
     Dates: start: 20230719, end: 20230722
  2. RISPERDAL [Concomitant]
     Active Substance: RISPERIDONE
     Indication: Behaviour disorder
     Route: 048
     Dates: start: 20230713
  3. ZOLOFT [Concomitant]
     Active Substance: SERTRALINE HYDROCHLORIDE
     Indication: Obsessive-compulsive disorder
     Route: 048
     Dates: start: 20230713
  4. ETOPOSIDE [Suspect]
     Active Substance: ETOPOSIDE
     Indication: Testicular embryonal carcinoma
     Dosage: 150 MG/DAY FROM DAY 19/07 TO DAY 22/07/23 AND FROM DAY 11/08 TO DAY 14/08/23
     Route: 042
     Dates: start: 20230719, end: 20230814
  5. BLEOMYCIN SULFATE [Suspect]
     Active Substance: BLEOMYCIN SULFATE
     Indication: Testicular embryonal carcinoma
     Dosage: 22.50 MG/DAY ON 20/07 AND 12/08/23
     Route: 042
     Dates: start: 20230720, end: 20230812

REACTIONS (5)
  - Escherichia infection [Recovering/Resolving]
  - Leukopenia [Recovered/Resolved]
  - Febrile neutropenia [Recovered/Resolved]
  - Platelet disorder [Recovering/Resolving]
  - Alopecia [Recovered/Resolved]

NARRATIVE: CASE EVENT DATE: 20230804
